FAERS Safety Report 10528227 (Version 1)
Quarter: 2014Q4

REPORT INFORMATION
  Report Type: Spontaneous
  Country: US (occurrence: None)
  Receive Date: 20141017
  Receipt Date: 20141017
  Transmission Date: 20150528
  Serious: Yes (Other)
  Sender: FDA-Public Use
  Company Number: None

PATIENT
  Age: 65 Year
  Sex: Female
  Weight: 66.23 kg

DRUGS (2)
  1. CELESTONE [Suspect]
     Active Substance: BETAMETHASONE
     Indication: INFLAMMATION
     Dosage: ONCE
  2. CELESTONE [Suspect]
     Active Substance: BETAMETHASONE
     Indication: PERIPHERAL NERVE LESION
     Dosage: ONCE

REACTIONS (4)
  - Malaise [None]
  - Vomiting [None]
  - Nausea [None]
  - Injection site nodule [None]

NARRATIVE: CASE EVENT DATE: 20141015
